FAERS Safety Report 10161732 (Version 1)
Quarter: 2014Q2

REPORT INFORMATION
  Report Type: Spontaneous
  Country: GB (occurrence: None)
  Receive Date: 20140507
  Receipt Date: 20140507
  Transmission Date: 20141212
  Serious: Yes (Disabling)
  Sender: FDA-Public Use
  Company Number: AUR-APL-2014-05226

PATIENT
  Age: 50 Year
  Sex: Female

DRUGS (3)
  1. PERINDOPRIL [Suspect]
     Indication: HYPERTENSION
     Route: 048
     Dates: start: 20140314, end: 20140415
  2. FLUTICASONE [Concomitant]
  3. VENTOLIN (SALBUTAMOL) [Concomitant]

REACTIONS (1)
  - Arthralgia [None]
